FAERS Safety Report 4571216-9 (Version None)
Quarter: 2005Q1

REPORT INFORMATION
  Report Type: 
  Country: None (occurrence: None)
  Receive Date: 20050202
  Receipt Date: 20050118
  Transmission Date: 20050727
  Serious: Yes (Other)
  Sender: FDA-Public Use
  Company Number: USA050188857

PATIENT
  Sex: Female

DRUGS (1)
  1. FORTEO [Suspect]
     Dates: start: 20040801

REACTIONS (2)
  - BLOOD CALCIUM INCREASED [None]
  - PHARMACEUTICAL PRODUCT COMPLAINT [None]
